FAERS Safety Report 16898050 (Version 1)
Quarter: 2019Q4

REPORT INFORMATION
  Report Type: Spontaneous
  Country: GB (occurrence: GB)
  Receive Date: 20191009
  Receipt Date: 20191009
  Transmission Date: 20200122
  Serious: Yes (Hospitalization)
  Sender: FDA-Public Use
  Company Number: GB-ACCORD-156664

PATIENT
  Age: 54 Year
  Sex: Male

DRUGS (9)
  1. SERTRALINE [Suspect]
     Active Substance: SERTRALINE HYDROCHLORIDE
     Indication: PRODUCT USED FOR UNKNOWN INDICATION
     Dosage: 100MG + 50MG AT NIGHT AS A SINGLE DOSE
  2. VENTOLIN [Concomitant]
     Active Substance: ALBUTEROL SULFATE
     Dosage: ONE OR TWO PUFFS FOUR TIMES A DAY WHEN REQUIRED
     Route: 055
  3. DIAZEPAM. [Concomitant]
     Active Substance: DIAZEPAM
  4. GABAPENTIN. [Concomitant]
     Active Substance: GABAPENTIN
  5. DOXAZOSIN [Concomitant]
     Active Substance: DOXAZOSIN MESYLATE
  6. ESOMEPRAZOLE/ESOMEPRAZOLE MAGNESIUM/ESOMEPRAZOLE SODIUM [Concomitant]
     Dosage: EACH MORNING
  7. TRAMADOL. [Concomitant]
     Active Substance: TRAMADOL
  8. RANITIDINE. [Concomitant]
     Active Substance: RANITIDINE
  9. FOSTAIR [Concomitant]
     Active Substance: BECLOMETHASONE\FORMOTEROL
     Dosage: 100MICROGRAMS/6MICROGRAMS/DOSE. PUFFS.
     Route: 055

REACTIONS (4)
  - Haematemesis [Recovered/Resolved]
  - Melaena [Not Recovered/Not Resolved]
  - Abdominal pain upper [Unknown]
  - Gastrointestinal haemorrhage [Unknown]
